FAERS Safety Report 9037241 (Version 2)
Quarter: 2015Q4

REPORT INFORMATION
  Report Type: Report from Study
  Country: GB (occurrence: GB)
  Receive Date: 20130129
  Receipt Date: 20151207
  Transmission Date: 20160305
  Serious: Yes (Disabling, Other)
  Sender: FDA-Public Use
  Company Number: GB-009507513-1301GBR004681

PATIENT
  Age: 53 Year
  Sex: Female

DRUGS (2)
  1. LENALIDOMIDE [Suspect]
     Active Substance: LENALIDOMIDE
     Indication: PLASMA CELL MYELOMA
     Dosage: 10 MG, DAILY FOR 1-21 DAY
     Route: 048
     Dates: start: 20121024, end: 20121211
  2. VORINOSTAT [Suspect]
     Active Substance: VORINOSTAT
     Indication: PLASMA CELL MYELOMA
     Dosage: 200 MG, DAYS 1-7, 15-21
     Route: 048
     Dates: start: 20121024, end: 20121211

REACTIONS (2)
  - Diarrhoea [Recovered/Resolved with Sequelae]
  - Melanocytic naevus [Recovered/Resolved]

NARRATIVE: CASE EVENT DATE: 20121029
